FAERS Safety Report 25058739 (Version 2)
Quarter: 2025Q1

REPORT INFORMATION
  Report Type: Report from Study
  Country: US (occurrence: US)
  Receive Date: 20250310
  Receipt Date: 20250312
  Transmission Date: 20250408
  Serious: Yes (Other)
  Sender: NOVARTIS
  Company Number: US-002147023-NVSC2025US038745

PATIENT
  Sex: Female

DRUGS (1)
  1. KESIMPTA [Suspect]
     Active Substance: OFATUMUMAB
     Indication: Product used for unknown indication
     Route: 058

REACTIONS (8)
  - Multiple sclerosis [Unknown]
  - Speech disorder [Unknown]
  - Muscular weakness [Unknown]
  - Memory impairment [Unknown]
  - Gait disturbance [Unknown]
  - Back pain [Unknown]
  - Fall [Unknown]
  - Device issue [Unknown]
